FAERS Safety Report 5240375-7 (Version None)
Quarter: 2007Q1

REPORT INFORMATION
  Report Type: 
  Country: None (occurrence: None)
  Receive Date: 20061208
  Receipt Date: 20050304
  Transmission Date: 20070707
  Serious: Yes (Other)
  Sender: FDA-Public Use
  Company Number: 2005UW03572

PATIENT
  Age: 74 Year
  Sex: Male
  Weight: 74.842 kg

DRUGS (5)
  1. CRESTOR [Suspect]
     Indication: HYPERCHOLESTEROLAEMIA
     Dosage: 20 MG PO
     Route: 048
  2. KLONOPIN [Concomitant]
  3. LEXAPRO [Concomitant]
  4. AVAPRO [Concomitant]
  5. ASPIRIN [Concomitant]

REACTIONS (1)
  - GROIN PAIN [None]
